FAERS Safety Report 4264742-3 (Version None)
Quarter: 2004Q1

REPORT INFORMATION
  Report Type: 
  Country: None (occurrence: None)
  Receive Date: 20040102
  Receipt Date: 20031220
  Transmission Date: 20041129
  Serious: Yes (Other)
  Sender: FDA-Public Use
  Company Number: 2003125621

PATIENT
  Age: 35 Year
  Sex: Male
  Weight: 89.3586 kg

DRUGS (8)
  1. NEURONTIN [Suspect]
     Indication: PAIN
     Dosage: 900 MG (TID), ORAL
     Route: 048
     Dates: start: 19920601
  2. BISMUTH SUBSALICYLATE IN OIL INJ [Suspect]
     Indication: DYSPEPSIA
     Dates: start: 20030801, end: 20030801
  3. MORPHINE SULFATE [Concomitant]
  4. CITALOPRAM (CITALOPRAM) [Concomitant]
  5. QUETIAPINE FUMARATE (QUETIAPINE FUMARATE) [Concomitant]
  6. TOPIRAMATE [Concomitant]
  7. VICODIN [Concomitant]
  8. OXYCODONE HCL [Concomitant]

REACTIONS (8)
  - DISCOMFORT [None]
  - DRUG DEPENDENCE [None]
  - DRUG INEFFECTIVE [None]
  - DRUG LEVEL DECREASED [None]
  - DYSPEPSIA [None]
  - FEAR [None]
  - HALLUCINATION [None]
  - TREATMENT NONCOMPLIANCE [None]
